FAERS Safety Report 6263770-6 (Version None)
Quarter: 2009Q3

REPORT INFORMATION
  Report Type: 
  Country: None (occurrence: None)
  Receive Date: 20090710
  Receipt Date: 20090701
  Transmission Date: 20100115
  Serious: Yes (Other)
  Sender: FDA-Public Use
  Company Number: PHHY2009GB27073

PATIENT
  Age: 68 Year
  Sex: Female

DRUGS (2)
  1. VALSARTAN [Suspect]
     Indication: HYPERTENSION
     Dosage: 40MG
     Route: 048
     Dates: start: 20090616, end: 20090618
  2. RAMIPRIL [Concomitant]
     Dosage: 2.5MG
     Route: 048
     Dates: start: 20090603, end: 20090608

REACTIONS (6)
  - ASTHMA [None]
  - BLOOD GLUCOSE INCREASED [None]
  - DIABETES MELLITUS INADEQUATE CONTROL [None]
  - DYSPNOEA [None]
  - JOINT SWELLING [None]
  - LEFT VENTRICULAR FAILURE [None]
